FAERS Safety Report 10387423 (Version 2)
Quarter: 2014Q3

REPORT INFORMATION
  Report Type: Spontaneous
  Country: US (occurrence: US)
  Receive Date: 20140815
  Receipt Date: 20140815
  Transmission Date: 20150326
  Serious: Yes (Hospitalization, Other)
  Sender: FDA-Public Use
  Company Number: US-009507513-2008-183092-NL

PATIENT
  Sex: Female
  Weight: 78 kg

DRUGS (2)
  1. LEVOXYL [Concomitant]
     Active Substance: LEVOTHYROXINE SODIUM
     Dosage: DOSE TEXT: ONE HALD DAILY
  2. NUVARING [Suspect]
     Active Substance: ETHINYL ESTRADIOL\ETONOGESTREL
     Indication: CONTRACEPTION
     Dosage: DOSE TEXT: 3 WEEKS PER MONTH, CONTINUING: NO
     Dates: start: 200710, end: 20071105

REACTIONS (7)
  - Pleurisy [Recovering/Resolving]
  - Haemangioma [Unknown]
  - Melanocytic naevus [Unknown]
  - Acne [Unknown]
  - Laceration [Unknown]
  - Pulmonary embolism [Unknown]
  - Alopecia [Unknown]

NARRATIVE: CASE EVENT DATE: 200711
